FAERS Safety Report 18995110 (Version 1)
Quarter: 2021Q1

REPORT INFORMATION
  Report Type: Report from Study
  Country: CA (occurrence: CA)
  Receive Date: 20210310
  Receipt Date: 20210310
  Transmission Date: 20210420
  Serious: Yes (Other)
  Sender: FDA-Public Use
  Company Number: CA-JNJFOC-20201237573

PATIENT
  Age: 16 Year
  Sex: Female
  Weight: 49.49 kg

DRUGS (1)
  1. REMICADE [Suspect]
     Active Substance: INFLIXIMAB
     Indication: JUVENILE IDIOPATHIC ARTHRITIS
     Dosage: PRESCRIBED ON 16/DEC/2020
     Route: 042
     Dates: start: 20210118

REACTIONS (10)
  - Fall [Unknown]
  - Loss of consciousness [Unknown]
  - Fatigue [Unknown]
  - Off label use [Unknown]
  - Feeling abnormal [Recovered/Resolved]
  - Arthralgia [Recovering/Resolving]
  - Concussion [Recovered/Resolved]
  - Head injury [Unknown]
  - Dizziness [Recovered/Resolved]
  - Product use in unapproved indication [Unknown]

NARRATIVE: CASE EVENT DATE: 2021
